APPROVED DRUG PRODUCT: ESTRADIOL AND PROGESTERONE
Active Ingredient: ESTRADIOL; PROGESTERONE
Strength: 1MG;100MG
Dosage Form/Route: CAPSULE;ORAL
Application: A214293 | Product #001
Applicant: AMNEAL PHARMACEUTICALS OF NEW YORK LLC
Approved: May 16, 2022 | RLD: No | RS: No | Type: DISCN